FAERS Safety Report 8112528-1 (Version None)
Quarter: 2012Q1

REPORT INFORMATION
  Report Type: 
  Country: None (occurrence: None)
  Receive Date: 20120203
  Receipt Date: 20120125
  Transmission Date: 20120608
  Serious: Yes (Hospitalization, Other)
  Sender: FDA-Public Use
  Company Number: IE-JNJFOC-20110408438

PATIENT
  Age: 23 Year
  Sex: Male

DRUGS (6)
  1. REMICADE [Suspect]
     Indication: ARTHRITIS
     Dosage: FIRST DOSE
     Route: 042
     Dates: start: 20101119
  2. CHLORPHENIRAMINE MALEATE [Concomitant]
     Indication: PREMEDICATION
     Route: 042
  3. REMICADE [Suspect]
     Dosage: FIRST DOSE
     Route: 042
     Dates: start: 20101119
  4. REMICADE [Suspect]
     Indication: INFLAMMATORY BOWEL DISEASE
     Dosage: SECOND DOSE
     Route: 042
     Dates: start: 20101203
  5. HYDROCORTISONE [Concomitant]
     Indication: PREMEDICATION
     Route: 042
  6. REMICADE [Suspect]
     Dosage: SECOND DOSE
     Route: 042
     Dates: start: 20101203

REACTIONS (6)
  - INFUSION RELATED REACTION [None]
  - FLUSHING [None]
  - BACK PAIN [None]
  - CHEST DISCOMFORT [None]
  - DYSPNOEA [None]
  - ADVERSE EVENT [None]
